FAERS Safety Report 9678383 (Version 2)
Quarter: 2013Q4

REPORT INFORMATION
  Report Type: Spontaneous
  Country: US (occurrence: US)
  Receive Date: 20131108
  Receipt Date: 20131121
  Transmission Date: 20140711
  Serious: Yes (Hospitalization, Other)
  Sender: FDA-Public Use
  Company Number: US-GILEAD-2013-0087278

PATIENT
  Sex: Female

DRUGS (2)
  1. LETAIRIS [Suspect]
     Indication: PULMONARY HYPERTENSION
     Dosage: 10 MG, UNK
     Route: 048
     Dates: start: 20130315
  2. LETAIRIS [Suspect]
     Indication: TOXICITY TO VARIOUS AGENTS

REACTIONS (3)
  - Pulmonary thrombosis [Unknown]
  - Viral infection [Unknown]
  - Speech disorder [Unknown]
